FAERS Safety Report 25447599 (Version 2)
Quarter: 2025Q2

REPORT INFORMATION
  Report Type: Report from Study
  Country: US (occurrence: US)
  Receive Date: 20250617
  Receipt Date: 20250626
  Transmission Date: 20250716
  Serious: Yes (Hospitalization, Other)
  Sender: TAKEDA
  Company Number: US-TAKEDA-2025TUS020449

PATIENT
  Age: 51 Year

DRUGS (3)
  1. VEDOLIZUMAB [Suspect]
     Active Substance: VEDOLIZUMAB
     Indication: Crohn^s disease
     Dosage: 300 MILLIGRAM, Q4WEEKS
     Dates: start: 20241111
  2. VEDOLIZUMAB [Suspect]
     Active Substance: VEDOLIZUMAB
     Indication: Colitis ulcerative
  3. CALCITRIOL [Concomitant]
     Active Substance: CALCITRIOL

REACTIONS (10)
  - Crohn^s disease [Recovering/Resolving]
  - Renal impairment [Recovered/Resolved]
  - Large intestinal ulcer [Not Recovered/Not Resolved]
  - Blood sodium abnormal [Recovered/Resolved]
  - Illness [Recovering/Resolving]
  - Fatigue [Recovered/Resolved]
  - Somnolence [Not Recovered/Not Resolved]
  - Decreased immune responsiveness [Recovered/Resolved]
  - Asthenia [Unknown]
  - Nasopharyngitis [Recovered/Resolved]

NARRATIVE: CASE EVENT DATE: 20250217
